FAERS Safety Report 8758473 (Version 2)
Quarter: 2013Q1

REPORT INFORMATION
  Report Type: Spontaneous
  Country: US (occurrence: None)
  Receive Date: 20120820
  Receipt Date: 20120926
  Transmission Date: 20140127
  Serious: Yes (Hospitalization, Other)
  Sender: FDA-Public Use
  Company Number: US-1193444

PATIENT
  Age: 79 Year
  Sex: Male
  Weight: 76.66 kg

DRUGS (6)
  1. NEVANAC [Suspect]
     Indication: PREOPERATIVE CARE
     Dosage: O.S,
     Route: 047
     Dates: start: 20120725, end: 20120726
  2. SIMVASTATIN [Concomitant]
  3. DIPYRIDAMOLE [Concomitant]
  4. FOSINOPRIL [Concomitant]
  5. ASPIRIN [Concomitant]
  6. PLAVIX [Concomitant]

REACTIONS (13)
  - Nausea [None]
  - Blood pressure increased [None]
  - Retching [None]
  - Dizziness [None]
  - Asthenia [None]
  - Dyspnoea [None]
  - Hypotension [None]
  - VIIth nerve paralysis [None]
  - Cerebrovascular accident [None]
  - Vertigo [None]
  - Electrocardiogram abnormal [None]
  - Drug ineffective [None]
  - Cerebellar haemorrhage [None]
